FAERS Safety Report 8416322-3 (Version None)
Quarter: 2012Q2

REPORT INFORMATION
  Report Type: 
  Country: None (occurrence: None)
  Receive Date: 20120323
  Receipt Date: 20110804
  Transmission Date: 20120825
  Serious: Yes (Hospitalization)
  Sender: FDA-Public Use
  Company Number: 163-21880-11080882

PATIENT
  Age: 80 Year
  Sex: Female

DRUGS (6)
  1. FUROSEMIDE [Concomitant]
  2. REVLIMID [Suspect]
     Indication: MYELODYSPLASTIC SYNDROME
     Dosage: 5 MG, 1 IN 1 D, PO
     Route: 048
     Dates: start: 20110602
  3. BENADRYL [Concomitant]
  4. LISINOPRIL [Concomitant]
  5. HYDROCODONE/ACETAMINOPHEN (REMEDEINE) [Concomitant]
  6. FOLIC ACID [Concomitant]

REACTIONS (1)
  - FULL BLOOD COUNT DECREASED [None]
